FAERS Safety Report 5896317-4 (Version None)
Quarter: 2008Q3

REPORT INFORMATION
  Report Type: 
  Country: None (occurrence: None)
  Receive Date: 20080924
  Receipt Date: 20080613
  Transmission Date: 20090109
  Serious: Yes (Hospitalization)
  Sender: FDA-Public Use
  Company Number: US-ASTRAZENECA-2007UW19711

PATIENT
  Age: 20241 Day
  Sex: Male
  Weight: 55.8 kg

DRUGS (7)
  1. SEROQUEL [Suspect]
     Indication: BIPOLAR DISORDER
     Dosage: 100 MG, 200 MG
     Route: 048
     Dates: start: 20051212, end: 20070208
  2. SEROQUEL [Suspect]
     Dosage: 200 MG, 300 MG
     Route: 048
     Dates: start: 20070208
  3. RISPERDAL [Concomitant]
     Dates: start: 20060101
  4. HALDOL [Concomitant]
     Dates: start: 19780101
  5. THORAZINE [Concomitant]
     Dates: start: 19710101, end: 19730101
  6. LITHIUM CARBONATE [Concomitant]
     Dosage: VARIOUS DOSES
     Dates: start: 19790101, end: 20050101
  7. IMIPRAMINE [Concomitant]
     Dates: start: 20050401, end: 20061201

REACTIONS (3)
  - PANCREATITIS [None]
  - RENAL DISORDER [None]
  - TYPE 2 DIABETES MELLITUS [None]
